FAERS Safety Report 25498680 (Version 2)
Quarter: 2025Q3

REPORT INFORMATION
  Report Type: Spontaneous
  Country: JP (occurrence: JP)
  Receive Date: 20250701
  Receipt Date: 20250818
  Transmission Date: 20251021
  Serious: Yes (Life-Threatening)
  Sender: NX DEVELOPMENT CORPORATION
  Company Number: JP-Photonamic-2025PHN00085

PATIENT
  Age: 77 Year
  Sex: Male
  Weight: 57.7 kg

DRUGS (4)
  1. AMINOLEVULINIC ACID HYDROCHLORIDE [Suspect]
     Active Substance: AMINOLEVULINIC ACID HYDROCHLORIDE
     Indication: Photodynamic diagnostic procedure
     Route: 048
     Dates: start: 20250501, end: 20250501
  2. AMLODIPINE [Concomitant]
     Active Substance: AMLODIPINE BESYLATE
     Route: 048
     Dates: start: 20240401, end: 20250616
  3. AMLODIPINE [Concomitant]
     Active Substance: AMLODIPINE BESYLATE
     Route: 050
     Dates: start: 2008
  4. Silodosin OD [Concomitant]
     Route: 048
     Dates: start: 2008

REACTIONS (2)
  - Atrial fibrillation [Recovered/Resolved]
  - Hypotension [Recovered/Resolved]

NARRATIVE: CASE EVENT DATE: 20250501
